FAERS Safety Report 4711372-2 (Version None)
Quarter: 2005Q3

REPORT INFORMATION
  Report Type: 
  Country: None (occurrence: None)
  Receive Date: 20050711
  Receipt Date: 20050614
  Transmission Date: 20060218
  Serious: Yes (Disabling)
  Sender: FDA-Public Use
  Company Number: US-MERCK-0506USA02191

PATIENT
  Age: 67 Year
  Sex: Female

DRUGS (21)
  1. VIOXX [Suspect]
     Route: 048
  2. DIGITEK [Concomitant]
     Route: 065
  3. AMBIEN [Concomitant]
     Route: 065
  4. PREMARIN [Concomitant]
     Route: 065
  5. PLAVIX [Concomitant]
     Route: 065
  6. MAGNESIUM (UNSPECIFIED) [Concomitant]
     Route: 065
  7. ASPIRIN [Concomitant]
     Route: 065
  8. VITAMIN E [Concomitant]
     Route: 065
  9. ASCORBIC ACID [Concomitant]
     Route: 065
  10. CLONAZEPAM [Concomitant]
     Route: 065
  11. NEXIUM [Concomitant]
     Route: 065
  12. CENTRUM [Concomitant]
     Route: 065
  13. AMITRIPTYLINE HYDROCHLORIDE [Concomitant]
     Route: 065
  14. SINGULAIR [Concomitant]
     Route: 065
  15. ALLEGRA [Concomitant]
     Route: 065
  16. ULTRACET [Concomitant]
     Route: 065
  17. NEURONTIN [Concomitant]
     Route: 065
  18. PANCREASE (PANCREATIN) [Concomitant]
     Route: 065
  19. [THERAPY UNSPECIFIED] [Concomitant]
     Route: 065
  20. [THERAPY UNSPECIFIED] [Concomitant]
     Route: 065
  21. [THERAPY UNSPECIFIED] [Concomitant]
     Route: 065

REACTIONS (1)
  - CEREBROVASCULAR ACCIDENT [None]
